FAERS Safety Report 21048734 (Version 3)
Quarter: 2022Q4

REPORT INFORMATION
  Report Type: Report from Study
  Country: BR (occurrence: BR)
  Receive Date: 20220706
  Receipt Date: 20221209
  Transmission Date: 20230113
  Serious: Yes (Hospitalization)
  Sender: FDA-Public Use
  Company Number: BR-JNJFOC-20220664622

PATIENT
  Age: 84 Year
  Sex: Female
  Weight: 62 kg

DRUGS (2)
  1. JANSSEN COVID-19 VACCINE [Suspect]
     Active Substance: AD26.COV2.S
     Indication: COVID-19 prophylaxis
     Dosage: DOSE 2
     Route: 065
  2. SIMPONI [Suspect]
     Active Substance: GOLIMUMAB
     Indication: Rheumatoid arthritis
     Route: 058
     Dates: start: 20210205

REACTIONS (10)
  - Myocardial infarction [Recovered/Resolved]
  - Angina pectoris [Unknown]
  - Venous occlusion [Unknown]
  - COVID-19 [Recovering/Resolving]
  - Hypokinesia [Unknown]
  - Dizziness [Unknown]
  - COVID-19 immunisation [Unknown]
  - Off label use [Unknown]
  - Malaise [Unknown]
  - Asthenia [Unknown]

NARRATIVE: CASE EVENT DATE: 20220201
